FAERS Safety Report 10624904 (Version 1)
Quarter: 2014Q4

REPORT INFORMATION
  Report Type: Spontaneous
  Country: LK (occurrence: LK)
  Receive Date: 20141204
  Receipt Date: 20141204
  Transmission Date: 20150529
  Serious: Yes (Hospitalization)
  Sender: FDA-Public Use
  Company Number: LK-ACCORD-027393

PATIENT
  Age: 46 Year
  Sex: Male

DRUGS (2)
  1. PREDNISOLONE. [Suspect]
     Active Substance: PREDNISOLONE
     Indication: LIVER TRANSPLANT
  2. TACROLIMUS. [Suspect]
     Active Substance: TACROLIMUS
     Indication: LIVER TRANSPLANT

REACTIONS (6)
  - Blood creatinine increased [Recovering/Resolving]
  - Tremor [Unknown]
  - Acute sinusitis [Unknown]
  - Toxicity to various agents [Unknown]
  - Dengue fever [Recovered/Resolved]
  - Diabetes mellitus [Unknown]
